FAERS Safety Report 9122337 (Version 1)
Quarter: 2013Q1

REPORT INFORMATION
  Report Type: Spontaneous
  Country: DE (occurrence: DE)
  Receive Date: 20130114
  Receipt Date: 20130114
  Transmission Date: 20140127
  Serious: Yes (Other)
  Sender: FDA-Public Use
  Company Number: DE-PFIZER INC-2013009042

PATIENT
  Age: 62 Year
  Sex: Female

DRUGS (1)
  1. UNACID [Suspect]
     Indication: BRONCHITIS
     Dosage: 375 MG, 2X/DAY

REACTIONS (1)
  - Melaena [Unknown]
